FAERS Safety Report 5370167-X (Version None)
Quarter: 2007Q2

REPORT INFORMATION
  Report Type: 
  Country: None (occurrence: None)
  Receive Date: 20070613
  Receipt Date: 20070316
  Transmission Date: 20071010
  Serious: No
  Sender: FDA-Public Use
  Company Number: IND-AE-07-SAN-015

PATIENT
  Age: 65 Year
  Sex: Female
  Weight: 63.5036 kg

DRUGS (6)
  1. SANCTURA [Suspect]
     Indication: HYPERTONIC BLADDER
     Dosage: 20 MG - BID - ORAL
     Route: 048
     Dates: start: 20070201
  2. PRAVACHOL [Concomitant]
  3. ATENOLOL [Concomitant]
  4. ACTONEL [Concomitant]
  5. EOTRIN (ASA) [Concomitant]
  6. CLARITIN [Concomitant]

REACTIONS (3)
  - DYSPHAGIA [None]
  - NASOPHARYNGITIS [None]
  - THROAT IRRITATION [None]
